FAERS Safety Report 11559467 (Version 1)
Quarter: 2015Q3

REPORT INFORMATION
  Report Type: Spontaneous
  Country: US (occurrence: None)
  Receive Date: 20150925
  Receipt Date: 20150925
  Transmission Date: 20151125
  Serious: Yes (Life-Threatening, Hospitalization)
  Sender: FDA-Public Use
  Company Number: None

PATIENT
  Age: 64 Year
  Sex: Female
  Weight: 113 kg

DRUGS (5)
  1. OXYCODONE 5 MG [Concomitant]
  2. FENTANYL PATCH 50 MCG/HR/DAY [Concomitant]
  3. AMITRIPTYLINE 25MG [Concomitant]
     Active Substance: AMITRIPTYLINE
  4. LIDOCAINE PATCH [Concomitant]
     Active Substance: LIDOCAINE
  5. GABAPENTIN. [Suspect]
     Active Substance: GABAPENTIN
     Indication: BACK PAIN
     Route: 048
     Dates: start: 20150831, end: 20150903

REACTIONS (6)
  - Mental status changes [None]
  - Hyperkalaemia [None]
  - Unresponsive to stimuli [None]
  - Hypopnoea [None]
  - Toxic encephalopathy [None]
  - Dysarthria [None]

NARRATIVE: CASE EVENT DATE: 20150902
